FAERS Safety Report 9303717 (Version 1)
Quarter: 2013Q2

REPORT INFORMATION
  Report Type: Report from Study
  Country: US (occurrence: None)
  Receive Date: 20130516
  Receipt Date: 20130516
  Transmission Date: 20140414
  Serious: Yes (Disabling)
  Sender: FDA-Public Use
  Company Number: SP03888

PATIENT
  Age: 73 Year
  Sex: Female
  Weight: 110.22 kg

DRUGS (4)
  1. MOVIPREP (SOLUTION) [Suspect]
     Indication: BOWEL PREPARATION
     Dosage: 16 OZ
     Route: 048
     Dates: start: 20110328, end: 20110328
  2. ATENOLOL [Concomitant]
  3. TRIAMTERENE-HYDROCHLOROTHIAZIDE [Concomitant]
  4. ASPIRIN [Concomitant]

REACTIONS (9)
  - Local swelling [None]
  - Ear pain [None]
  - Pain of skin [None]
  - Pain in extremity [None]
  - Dysgeusia [None]
  - Eructation [None]
  - Weight increased [None]
  - Activities of daily living impaired [None]
  - Impaired work ability [None]
